FAERS Safety Report 22907334 (Version 12)
Quarter: 2025Q2

REPORT INFORMATION
  Report Type: Spontaneous
  Country: IN (occurrence: IN)
  Receive Date: 20230905
  Receipt Date: 20250609
  Transmission Date: 20250716
  Serious: Yes (Other)
  Sender: PFIZER
  Company Number: IN-PFIZER INC-PV202200016823

PATIENT
  Age: 34 Year
  Sex: Male

DRUGS (7)
  1. LORLATINIB [Suspect]
     Active Substance: LORLATINIB
     Indication: Non-small cell lung cancer metastatic
     Dosage: 100 MG, 1X/DAY
     Route: 048
     Dates: end: 202404
  2. LORLATINIB [Suspect]
     Active Substance: LORLATINIB
     Route: 048
     Dates: start: 20220701
  3. LORLATINIB [Suspect]
     Active Substance: LORLATINIB
     Dosage: 100 MG, 1X/DAY (FOR 3 MONTHS)
  4. LORLATINIB [Suspect]
     Active Substance: LORLATINIB
     Dosage: 100 MG OD
     Route: 048
  5. ROSUVASTATIN CALCIUM [Concomitant]
     Active Substance: ROSUVASTATIN CALCIUM
     Dosage: 20 MG, 1X/DAY (FOR 3 MONTHS)
  6. ACETAMINOPHEN\IBUPROFEN [Concomitant]
     Active Substance: ACETAMINOPHEN\IBUPROFEN
     Dosage: 1 DF, 3X/DAY
  7. AUTRIN [ASCORBIC ACID;CYANOCOBALAMIN;DEXPANTHENOL;FERROUS SULFATE;NICO [Concomitant]
     Dosage: 1 CAP OD X 3M

REACTIONS (14)
  - Platelet count decreased [Not Recovered/Not Resolved]
  - Neutrophil count decreased [Unknown]
  - Weight fluctuation [Not Recovered/Not Resolved]
  - Haemoglobin decreased [Not Recovered/Not Resolved]
  - Blood creatinine decreased [Not Recovered/Not Resolved]
  - Emphysema [Unknown]
  - Magnetic resonance imaging head abnormal [Unknown]
  - Very low density lipoprotein increased [Recovered/Resolved]
  - Blood cholesterol increased [Not Recovered/Not Resolved]
  - High density lipoprotein decreased [Recovering/Resolving]
  - Blood urea increased [Recovered/Resolved]
  - Atelectasis [Unknown]
  - White blood cell count decreased [Recovered/Resolved]
  - Low density lipoprotein increased [Not Recovered/Not Resolved]

NARRATIVE: CASE EVENT DATE: 20220101
